FAERS Safety Report 6494677-7 (Version None)
Quarter: 2009Q4

REPORT INFORMATION
  Report Type: 
  Country: None (occurrence: None)
  Receive Date: 20091214
  Receipt Date: 20090313
  Transmission Date: 20100525
  Serious: No
  Sender: FDA-Public Use
  Company Number: US-BRISTOL-MYERS SQUIBB COMPANY-14543532

PATIENT
  Age: 50 Year
  Sex: Female

DRUGS (4)
  1. ABILIFY [Suspect]
     Indication: DEPRESSION
     Dosage: INITIAL DOSE 5MG(02FEB2009);DOSE INCREASED TO 10MG(21FEB2009);DOSE DECREASED TO 5MG ON 07MAR2009.
     Dates: start: 20090202
  2. CYMBALTA [Suspect]
     Indication: DEPRESSION
  3. VYVANSE [Suspect]
  4. CONCERTA [Suspect]

REACTIONS (2)
  - DYSKINESIA [None]
  - TREMOR [None]
